FAERS Safety Report 6004064-3 (Version None)
Quarter: 2008Q4

REPORT INFORMATION
  Report Type: 
  Country: None (occurrence: None)
  Receive Date: 20081216
  Receipt Date: 20081212
  Transmission Date: 20090506
  Serious: Yes (Other)
  Sender: FDA-Public Use
  Company Number: B0550053A

PATIENT
  Age: 81 Year
  Sex: Female

DRUGS (4)
  1. SERETIDE [Suspect]
     Indication: ASTHMA
     Dosage: 500MCG PER DAY
     Route: 055
     Dates: start: 20070720, end: 20080919
  2. THEOLONG [Concomitant]
     Route: 048
  3. MUCODYNE [Concomitant]
     Route: 048
  4. SINGULAIR [Concomitant]
     Route: 048

REACTIONS (2)
  - PNEUMONIA [None]
  - RESPIRATORY TRACT INFECTION [None]
